FAERS Safety Report 15190230 (Version 1)
Quarter: 2018Q3

REPORT INFORMATION
  Report Type: Spontaneous
  Country: US (occurrence: US)
  Receive Date: 20180625
  Receipt Date: 20180625
  Transmission Date: 20181010
  Serious: Yes (Death)
  Sender: FDA-Public Use
  Company Number: None

PATIENT
  Age: 42 Year
  Sex: Male
  Weight: 116 kg

DRUGS (2)
  1. SUGAMMADEX [Concomitant]
     Active Substance: SUGAMMADEX
     Dates: start: 20180517, end: 20180517
  2. SUGAMMADEX [Suspect]
     Active Substance: SUGAMMADEX
     Indication: ANAESTHESIA REVERSAL
     Dosage: ?          OTHER FREQUENCY:ONCE;?
     Route: 040
     Dates: start: 20180517, end: 20180517

REACTIONS (10)
  - Pulse absent [None]
  - Bradycardia [None]
  - Heart rate decreased [None]
  - Electrocardiogram T wave peaked [None]
  - Cardio-respiratory arrest [None]
  - Pulseless electrical activity [None]
  - General physical health deterioration [None]
  - Electrocardiogram QRS complex prolonged [None]
  - Ventricular fibrillation [None]
  - Cardiac arrest [None]

NARRATIVE: CASE EVENT DATE: 20180517
